FAERS Safety Report 15576800 (Version 1)
Quarter: 2018Q4

REPORT INFORMATION
  Report Type: Report from Study
  Country: IT (occurrence: IT)
  Receive Date: 20181101
  Receipt Date: 20181101
  Transmission Date: 20190205
  Serious: Yes (Hospitalization)
  Sender: FDA-Public Use
  Company Number: IT-GLAXOSMITHKLINE-IT2018132678

PATIENT

DRUGS (3)
  1. VOLTFAST [Suspect]
     Active Substance: DICLOFENAC
     Indication: TOOTHACHE
     Dosage: IN TOTAL
     Route: 048
     Dates: start: 20180626, end: 20180626
  2. BRUFEN (IBUPROFEN SODIUM) [Suspect]
     Active Substance: IBUPROFEN
     Indication: TOOTHACHE
     Dosage: IN TOTAL
     Route: 048
     Dates: start: 20180626, end: 20180626
  3. AMOXICILLIN AND CLAVULANATE POTASSIUM [Suspect]
     Active Substance: AMOXICILLIN\CLAVULANATE POTASSIUM
     Indication: TOOTHACHE
     Dosage: IN TOTAL
     Route: 048
     Dates: start: 20180626, end: 20180626

REACTIONS (2)
  - Abdominal pain upper [Recovering/Resolving]
  - Medication error [Recovering/Resolving]

NARRATIVE: CASE EVENT DATE: 20180626
